FAERS Safety Report 8232848-X (Version None)
Quarter: 2012Q1

REPORT INFORMATION
  Report Type: 
  Country: None (occurrence: None)
  Receive Date: 20120324
  Receipt Date: 20120314
  Transmission Date: 20120608
  Serious: Yes (Other)
  Sender: FDA-Public Use
  Company Number: US-ASTRAZENECA-2012SE17403

PATIENT
  Age: 90 Year
  Sex: Female
  Weight: 61.2 kg

DRUGS (5)
  1. OMEPRAZOLE [Suspect]
     Route: 048
  2. PLAVIX [Concomitant]
  3. DYAZIDE [Concomitant]
  4. ALPRAZOLAM [Concomitant]
  5. TOPROL-XL [Suspect]
     Indication: HYPERTENSION
     Route: 048

REACTIONS (3)
  - HYPERTENSION [None]
  - DRUG INEFFECTIVE [None]
  - CEREBROVASCULAR ACCIDENT [None]
